FAERS Safety Report 9909554 (Version 1)
Quarter: 2014Q1

REPORT INFORMATION
  Report Type: Report from Study
  Country: US (occurrence: US)
  Receive Date: 20140219
  Receipt Date: 20140219
  Transmission Date: 20141002
  Serious: Yes (Life-Threatening, Hospitalization)
  Sender: FDA-Public Use
  Company Number: US-PFIZER INC-2014043551

PATIENT
  Age: 74 Year
  Sex: Female
  Weight: 64 kg

DRUGS (6)
  1. BLINDED CELECOXIB [Suspect]
     Indication: ADENOCARCINOMA OF COLON
     Dosage: BLINDED THERAPY: QD STARTING ON DAY 1 OF CYCLE 2 OF FOLFOX, CONTINUED TO 3 YEARS
     Route: 048
  2. BLINDED PLACEBO [Suspect]
     Indication: ADENOCARCINOMA OF COLON
     Dosage: BLINDED THERAPY: QD STARTING ON DAY 1 OF CYCLE 2 OF FOLFOX, CONTINUED TO 3 YEARS
     Route: 048
  3. FLUOROURACIL [Suspect]
     Indication: ADENOCARCINOMA OF COLON
     Dosage: 400MG/M2 IVP ON DAY 1 FOLLOWED BY, ROUTE: IVP
     Route: 042
     Dates: start: 20131016
  4. FLUOROURACIL [Suspect]
     Dosage: 2400 MG/M2 IV OVER 46-48 HOURS ON DAY 1
     Route: 042
     Dates: start: 20131016
  5. ELOXATIN [Suspect]
     Indication: ADENOCARCINOMA OF COLON
     Dosage: 85MG/M2 IV OVER 2 HOURS ON DAY 1
     Route: 042
     Dates: start: 20131016
  6. LEUCOVORIN CALCIUM [Concomitant]
     Indication: ADENOCARCINOMA OF COLON
     Dosage: 400MG/M2 IV OVER 2 HOURS ON DAY 1
     Route: 042
     Dates: start: 20131016

REACTIONS (4)
  - Hypoxia [Unknown]
  - Sepsis [Unknown]
  - Respiratory failure [Unknown]
  - Cholecystitis [Unknown]
